FAERS Safety Report 4613835-7 (Version None)
Quarter: 2005Q1

REPORT INFORMATION
  Report Type: 
  Country: None (occurrence: None)
  Receive Date: 20050315
  Receipt Date: 20050208
  Transmission Date: 20050727
  Serious: Yes (Death, Other)
  Sender: FDA-Public Use
  Company Number: 2005BI004261

PATIENT
  Age: 66 Year
  Sex: Female

DRUGS (10)
  1. ZEVALIN [Suspect]
     Indication: NON-HODGKIN'S LYMPHOMA
     Dosage: SEE IMAGE
     Route: 042
     Dates: start: 20050101, end: 20050101
  2. ZEVALIN [Suspect]
     Indication: NON-HODGKIN'S LYMPHOMA
     Dosage: SEE IMAGE
     Route: 042
     Dates: start: 20050203, end: 20050203
  3. ZEVALIN [Suspect]
     Indication: NON-HODGKIN'S LYMPHOMA
     Dosage: SEE IMAGE
     Route: 042
     Dates: start: 20050203, end: 20050203
  4. ZEVALIN [Suspect]
  5. ZEVALIN [Suspect]
  6. BEAM (COMBINATIONS OF ANTINEOPLASTIC AGENTS) [Suspect]
     Indication: NON-HODGKIN'S LYMPHOMA
     Dates: start: 20050210, end: 20050210
  7. ANTIBIOTICS [Concomitant]
  8. METHOTREXATE [Concomitant]
  9. CYTARABINE [Concomitant]
  10. CYCLOPHOSPHAMIDE [Concomitant]

REACTIONS (12)
  - DRUG TOXICITY [None]
  - ESCHERICHIA INFECTION [None]
  - HEPATIC FUNCTION ABNORMAL [None]
  - HEPATOTOXICITY [None]
  - HYPERBILIRUBINAEMIA [None]
  - NEUTROPENIA [None]
  - POST PROCEDURAL COMPLICATION [None]
  - RENAL FAILURE [None]
  - RENAL IMPAIRMENT [None]
  - SEPTIC SHOCK [None]
  - STAPHYLOCOCCAL INFECTION [None]
  - STEM CELL TRANSPLANT [None]
